FAERS Safety Report 4770632-X (Version None)
Quarter: 2005Q3

REPORT INFORMATION
  Report Type: 
  Country: None (occurrence: None)
  Receive Date: 20050915
  Receipt Date: 20050907
  Transmission Date: 20060218
  Serious: Yes (Other)
  Sender: FDA-Public Use
  Company Number: DE-JNJFOC-20050902239

PATIENT
  Sex: Male

DRUGS (2)
  1. DURAGESIC-100 [Suspect]
     Indication: DRUG USE FOR UNKNOWN INDICATION
     Route: 062
  2. UNSPECIFIED ANTIDEPRESSIVE DRUG [Concomitant]
     Route: 065

REACTIONS (2)
  - HALLUCINATION, VISUAL [None]
  - MENTAL IMPAIRMENT [None]
